FAERS Safety Report 7075260-1 (Version None)
Quarter: 2010Q4

REPORT INFORMATION
  Report Type: 
  Country: None (occurrence: None)
  Receive Date: 20101030
  Receipt Date: 20100617
  Transmission Date: 20110411
  Serious: No
  Sender: FDA-Public Use
  Company Number: US-WYE-H16010310

PATIENT
  Age: 74 Year
  Sex: Female
  Weight: 81.72 kg

DRUGS (1)
  1. ALAVERT [Suspect]
     Indication: HYPERSENSITIVITY
     Route: 048
     Dates: start: 20100101, end: 20100101

REACTIONS (1)
  - DRUG EFFECT DECREASED [None]
